FAERS Safety Report 24182248 (Version 1)
Quarter: 2024Q3

REPORT INFORMATION
  Report Type: Spontaneous
  Country: PE (occurrence: PE)
  Receive Date: 20240807
  Receipt Date: 20240807
  Transmission Date: 20241017
  Serious: Yes (Hospitalization, Other)
  Sender: RANBAXY
  Company Number: PE-SUN PHARMACEUTICAL INDUSTRIES LTD-2024R1-460035

PATIENT
  Age: 26 Year
  Sex: Female

DRUGS (1)
  1. METHIMAZOLE [Suspect]
     Active Substance: METHIMAZOLE
     Indication: Hyperthyroidism
     Dosage: 20 MILLIGRAM 1 PILL IN THE MORNING AND 1/2 PILL IN THE EVENING
     Route: 065

REACTIONS (2)
  - Agranulocytosis [Recovering/Resolving]
  - Actinomycotic skin infection [Recovering/Resolving]
